FAERS Safety Report 18595146 (Version 2)
Quarter: 2020Q4

REPORT INFORMATION
  Report Type: Spontaneous
  Country: NL (occurrence: NL)
  Receive Date: 20201209
  Receipt Date: 20201218
  Transmission Date: 20210114
  Serious: Yes (Disabling)
  Sender: FDA-Public Use
  Company Number: NL-GUERBET-NL-20200019

PATIENT
  Age: 70 Year
  Sex: Female
  Weight: 50 kg

DRUGS (1)
  1. DOTAREM [Suspect]
     Active Substance: GADOTERATE MEGLUMINE
     Indication: MAGNETIC RESONANCE IMAGING
     Route: 065
     Dates: start: 202008, end: 202008

REACTIONS (5)
  - Skin discolouration [Unknown]
  - Muscle contracture [Unknown]
  - Pain [Unknown]
  - Fatigue [Unknown]
  - Headache [Not Recovered/Not Resolved]
